FAERS Safety Report 5216694-7 (Version None)
Quarter: 2006Q4

REPORT INFORMATION
  Report Type: 
  Country: None (occurrence: None)
  Receive Date: 20061130
  Receipt Date: 20060612
  Transmission Date: 20070319
  Serious: Yes (Hospitalization)
  Sender: FDA-Public Use
  Company Number: US200603006891

PATIENT
  Age: 36 Year
  Sex: Male
  Weight: 70.3 kg

DRUGS (7)
  1. ZYPREXA [Suspect]
     Dosage: 40 MG
     Route: 065
     Dates: start: 19990921, end: 20060201
  2. PROZAC [Suspect]
  3. POTASSIUM (POTASSIUM) [Concomitant]
  4. SEROQUEL [Concomitant]
  5. RISPERIDONE [Concomitant]
  6. THORAZINE [Concomitant]
  7. PAXIL [Concomitant]

REACTIONS (10)
  - ABDOMINAL PAIN [None]
  - ANOREXIA [None]
  - BLOOD AMYLASE INCREASED [None]
  - LIPASE INCREASED [None]
  - NAUSEA [None]
  - PANCREATITIS [None]
  - PRESCRIBED OVERDOSE [None]
  - RASH [None]
  - VOMITING [None]
  - WEIGHT DECREASED [None]
